FAERS Safety Report 15824448 (Version 6)
Quarter: 2019Q2

REPORT INFORMATION
  Report Type: Report from Study
  Country: None (occurrence: US)
  Receive Date: 20190115
  Receipt Date: 20190610
  Transmission Date: 20190711
  Serious: Yes (Hospitalization)
  Sender: FDA-Public Use
  Company Number: US-ABBVIE-19K-163-2622209-00

PATIENT
  Sex: Male

DRUGS (1)
  1. HUMIRA [Suspect]
     Active Substance: ADALIMUMAB
     Indication: PSORIASIS
     Route: 058
     Dates: start: 201811, end: 2018

REACTIONS (5)
  - Seizure [Unknown]
  - Asthenia [Not Recovered/Not Resolved]
  - Brain oedema [Unknown]
  - Renal disorder [Unknown]
  - Peritonitis [Unknown]

NARRATIVE: CASE EVENT DATE: 2018
